FAERS Safety Report 7923535-3 (Version None)
Quarter: 2011Q4

REPORT INFORMATION
  Report Type: 
  Country: None (occurrence: None)
  Receive Date: 20111117
  Receipt Date: 20110204
  Transmission Date: 20120403
  Serious: Yes (Other)
  Sender: FDA-Public Use
  Company Number: US-AMGEN-USASP2011007352

PATIENT
  Sex: Male

DRUGS (1)
  1. ENBREL [Suspect]
     Indication: PSORIASIS
     Dates: start: 20090101, end: 20090601

REACTIONS (4)
  - FURUNCLE [None]
  - DRUG INEFFECTIVE [None]
  - PSORIASIS [None]
  - STAPHYLOCOCCAL INFECTION [None]
